FAERS Safety Report 9952085 (Version 4)
Quarter: 2014Q1

REPORT INFORMATION
  Report Type: Spontaneous
  Country: GB (occurrence: GB)
  Receive Date: 20140304
  Receipt Date: 20140326
  Transmission Date: 20141002
  Serious: Yes (Hospitalization)
  Sender: FDA-Public Use
  Company Number: GB-009507513-1402GBR011406

PATIENT
  Age: 47 Year
  Sex: Male

DRUGS (4)
  1. MIRTAZAPINE [Suspect]
     Indication: BIPOLAR DISORDER
     Dosage: 30 MG, ONCE A NIGHT (1/1 DAYS)
     Route: 048
     Dates: start: 20130419, end: 20130425
  2. MIRTAZAPINE [Suspect]
     Indication: DEPRESSION
     Dosage: 30MG, ONCE
     Route: 065
     Dates: start: 20130424
  3. MIRTAZAPINE [Suspect]
     Dosage: UNK
     Route: 048
     Dates: start: 20090601, end: 20101123
  4. MIRTAZAPINE [Suspect]
     Dosage: UNK
     Route: 048
     Dates: start: 20120903

REACTIONS (1)
  - Priapism [Unknown]
